FAERS Safety Report 10210828 (Version 1)
Quarter: 2014Q2

REPORT INFORMATION
  Report Type: Spontaneous
  Country: US (occurrence: None)
  Receive Date: 20140529
  Receipt Date: 20140529
  Transmission Date: 20141212
  Serious: No
  Sender: FDA-Public Use
  Company Number: None

PATIENT
  Age: 63 Year
  Sex: Male

DRUGS (1)
  1. GEMFIBROZIL [Suspect]
     Indication: HYPERLIPIDAEMIA
     Dates: start: 20120907, end: 201211

REACTIONS (4)
  - Hepatitis cholestatic [None]
  - Drug-induced liver injury [None]
  - Hepatic cirrhosis [None]
  - Ascites [None]
